FAERS Safety Report 16934670 (Version 6)
Quarter: 2020Q3

REPORT INFORMATION
  Report Type: Report from Study
  Country: US (occurrence: US)
  Receive Date: 20191018
  Receipt Date: 20200706
  Transmission Date: 20201102
  Serious: Yes (Other)
  Sender: FDA-Public Use
  Company Number: US-AMGEN-USASP2019168603

PATIENT
  Age: 68 Year
  Sex: Female

DRUGS (4)
  1. VITAMIN D [ERGOCALCIFEROL] [Concomitant]
     Active Substance: ERGOCALCIFEROL
     Dosage: 1000 IU, QD
  2. LIPITOR [Concomitant]
     Active Substance: ATORVASTATIN CALCIUM
     Indication: BLOOD CHOLESTEROL INCREASED
     Dosage: UNK
  3. CENTRUM SILVER [ASCORBIC ACID;BETACAROTENE;BIOTIN;CALCIUM;CHROMIUM;COL [Concomitant]
     Dosage: UNK UNK, QD
  4. PROLIA [Suspect]
     Active Substance: DENOSUMAB
     Indication: OSTEOPOROSIS POSTMENOPAUSAL
     Dosage: 60 MILLIGRAM, Q6MO
     Route: 065
     Dates: start: 201811

REACTIONS (19)
  - Induration [Not Recovered/Not Resolved]
  - Dry skin [Unknown]
  - Feeding disorder [Unknown]
  - Gastrointestinal disorder [Unknown]
  - Stomatitis [Not Recovered/Not Resolved]
  - Hepatic steatosis [Unknown]
  - Parathyroid tumour benign [Recovered/Resolved]
  - Autoimmune thyroiditis [Not Recovered/Not Resolved]
  - Dyspepsia [Unknown]
  - Blood calcium decreased [Unknown]
  - Pain in extremity [Recovered/Resolved]
  - Blood calcium increased [Unknown]
  - Blood cholesterol increased [Unknown]
  - Bone pain [Unknown]
  - Gingival erythema [Not Recovered/Not Resolved]
  - Constipation [Unknown]
  - Hypoaesthesia [Not Recovered/Not Resolved]
  - Pruritus [Unknown]
  - Tremor [Unknown]

NARRATIVE: CASE EVENT DATE: 2019
